FAERS Safety Report 8574395-1 (Version None)
Quarter: 2012Q3

REPORT INFORMATION
  Report Type: 
  Country: None (occurrence: None)
  Receive Date: 20120806
  Receipt Date: 20120723
  Transmission Date: 20120928
  Serious: Yes (Other)
  Sender: FDA-Public Use
  Company Number: US-009507513-1207USA011272

PATIENT

DRUGS (1)
  1. ZOCOR [Suspect]
     Dosage: UNK, QPM

REACTIONS (3)
  - MEMORY IMPAIRMENT [None]
  - SKIN DISORDER [None]
  - CONFUSIONAL STATE [None]
